FAERS Safety Report 10076552 (Version 1)
Quarter: 2014Q2

REPORT INFORMATION
  Report Type: Spontaneous
  Country: US (occurrence: US)
  Receive Date: 20140414
  Receipt Date: 20140414
  Transmission Date: 20141212
  Serious: No
  Sender: FDA-Public Use
  Company Number: US-PFIZER INC-2014100967

PATIENT
  Age: 50 Year
  Sex: Female
  Weight: 66.2 kg

DRUGS (1)
  1. CHANTIX [Suspect]
     Indication: SMOKING CESSATION THERAPY
     Dosage: UNK
     Dates: start: 20140331

REACTIONS (7)
  - Poor quality drug administered [Unknown]
  - Product quality issue [Unknown]
  - Nausea [Unknown]
  - Abdominal discomfort [Unknown]
  - Abnormal dreams [Unknown]
  - Malaise [Unknown]
  - Vomiting [Unknown]
